FAERS Safety Report 12468710 (Version 1)
Quarter: 2016Q2

REPORT INFORMATION
  Report Type: Spontaneous
  Country: US (occurrence: US)
  Receive Date: 20160615
  Receipt Date: 20160615
  Transmission Date: 20160815
  Serious: Yes (Death, Hospitalization)
  Sender: FDA-Public Use
  Company Number: US-CONCORDIA PHARMACEUTICALS INC.-GSH201606-002987

PATIENT
  Age: 50 Year
  Sex: Female

DRUGS (2)
  1. METOPROLOL. [Suspect]
     Active Substance: METOPROLOL
  2. BUPROPION. [Suspect]
     Active Substance: BUPROPION

REACTIONS (7)
  - Seizure [Not Recovered/Not Resolved]
  - Bradycardia [Not Recovered/Not Resolved]
  - Multiple organ dysfunction syndrome [Fatal]
  - Cardiac arrest [Not Recovered/Not Resolved]
  - Completed suicide [Fatal]
  - Intentional overdose [Fatal]
  - Hypotension [Not Recovered/Not Resolved]
